FAERS Safety Report 22624217 (Version 1)
Quarter: 2023Q2

REPORT INFORMATION
  Report Type: Spontaneous
  Country: US (occurrence: US)
  Receive Date: 20230621
  Receipt Date: 20230621
  Transmission Date: 20230722
  Serious: No
  Sender: FDA-Public Use
  Company Number: US-ELI_LILLY_AND_COMPANY-US202306009922

PATIENT
  Age: 72 Year
  Sex: Male

DRUGS (2)
  1. MOUNJARO [Suspect]
     Active Substance: TIRZEPATIDE
     Indication: Type 2 diabetes mellitus
     Dosage: 10 MG, UNKNOWN
     Route: 058
     Dates: start: 20230614
  2. PANTOPRAZOLE [Concomitant]
     Active Substance: PANTOPRAZOLE
     Indication: Product used for unknown indication

REACTIONS (7)
  - Off label use [Unknown]
  - Arthralgia [Unknown]
  - Abdominal distension [Unknown]
  - Decreased appetite [Unknown]
  - Constipation [Unknown]
  - Vomiting [Unknown]
  - Eructation [Unknown]

NARRATIVE: CASE EVENT DATE: 20230614
